FAERS Safety Report 20595421 (Version 1)
Quarter: 2022Q1

REPORT INFORMATION
  Report Type: Spontaneous
  Country: FR (occurrence: FR)
  Receive Date: 20220315
  Receipt Date: 20220315
  Transmission Date: 20220424
  Serious: Yes (Other)
  Sender: FDA-Public Use
  Company Number: FR-MYLANLABS-2022M1018782

PATIENT
  Age: 17 Year
  Sex: Male

DRUGS (1)
  1. ESOMEPRAZOLE [Suspect]
     Active Substance: ESOMEPRAZOLE
     Indication: Product used for unknown indication
     Dosage: 2 DOSAGE FORM, QD, (2 DF DAILY)

REACTIONS (4)
  - Feeling abnormal [Unknown]
  - Chromaturia [Unknown]
  - Hallucination [Unknown]
  - Aggression [Unknown]
